FAERS Safety Report 11336599 (Version 2)
Quarter: 2015Q3

REPORT INFORMATION
  Report Type: Spontaneous
  Country: IT (occurrence: IT)
  Receive Date: 20150804
  Receipt Date: 20150904
  Transmission Date: 20151125
  Serious: Yes (Other)
  Sender: FDA-Public Use
  Company Number: IT-TEVA-582769ISR

PATIENT
  Age: 54 Year
  Sex: Female

DRUGS (1)
  1. BLEOMYCIN [Suspect]
     Active Substance: BLEOMYCIN SULFATE
     Indication: KAPOSI^S SARCOMA CLASSICAL TYPE
     Route: 042

REACTIONS (3)
  - Asthenia [Unknown]
  - Akinesia [Unknown]
  - Confusional state [Unknown]
